FAERS Safety Report 12416017 (Version 1)
Quarter: 2016Q2

REPORT INFORMATION
  Report Type: Report from Study
  Country: US (occurrence: US)
  Receive Date: 20160530
  Receipt Date: 20160530
  Transmission Date: 20160815
  Serious: Yes (Death, Life-Threatening, Hospitalization)
  Sender: FDA-Public Use
  Company Number: US-ROCHE-1764356

PATIENT
  Age: 64 Year
  Sex: Female

DRUGS (2)
  1. CISPLATIN. [Suspect]
     Active Substance: CISPLATIN
     Indication: ADENOCARCINOMA GASTRIC
     Dosage: MOST RECENT DOSE PRIOR TO SAE- 04/APR/2016
     Route: 042
     Dates: start: 20160404
  2. CAPECITABINE. [Suspect]
     Active Substance: CAPECITABINE
     Indication: ADENOCARCINOMA GASTRIC
     Dosage: DAY 1-14, 21 DAY CYCLE.?MOST RECENT DOSE -11/APR/2016
     Route: 048
     Dates: start: 20160404

REACTIONS (3)
  - Septic shock [Fatal]
  - Febrile neutropenia [Not Recovered/Not Resolved]
  - Respiratory failure [Not Recovered/Not Resolved]

NARRATIVE: CASE EVENT DATE: 20160419
